FAERS Safety Report 15833360 (Version 2)
Quarter: 2019Q1

REPORT INFORMATION
  Report Type: Spontaneous
  Country: KR (occurrence: KR)
  Receive Date: 20190116
  Receipt Date: 20190130
  Transmission Date: 20190417
  Serious: Yes (Death, Other)
  Sender: FDA-Public Use
  Company Number: KR-009507513-1901KOR005493

PATIENT
  Sex: Female

DRUGS (10)
  1. MORPHINE HYDROCHLORIDE [Concomitant]
     Active Substance: MORPHINE HYDROCHLORIDE
     Dosage: QUNATITY 2; DAYS 1
     Dates: start: 20181015, end: 20181015
  2. MORPHINE HYDROCHLORIDE [Concomitant]
     Active Substance: MORPHINE HYDROCHLORIDE
     Dosage: QUNATITY 8; DAYS 1
     Dates: start: 20180921, end: 20180921
  3. DENOGAN [Concomitant]
     Active Substance: PROPACETAMOL HYDROCHLORIDE
     Dosage: QUNATITY 1; DAYS 2
     Dates: start: 20180921, end: 20180921
  4. KEYTRUDA [Suspect]
     Active Substance: PEMBROLIZUMAB
     Indication: GALLBLADDER CANCER
     Dosage: QUANTITY 2; DAYS 1
     Dates: start: 20180921, end: 20180921
  5. KEYTRUDA [Suspect]
     Active Substance: PEMBROLIZUMAB
     Dosage: QUANTITY 2; DAYS 1
     Dates: start: 20181015, end: 20181015
  6. MORPHINE HYDROCHLORIDE [Concomitant]
     Active Substance: MORPHINE HYDROCHLORIDE
     Dosage: QUNATITY 1; DAYS 15
     Dates: start: 20180920
  7. MORPHINE HYDROCHLORIDE [Concomitant]
     Active Substance: MORPHINE HYDROCHLORIDE
     Dosage: QUNATITY 2; DAYS 4
     Dates: start: 20180921, end: 20180922
  8. MG TNA PERI [Concomitant]
     Dosage: QUNATITY 1; DAYS 1
     Dates: start: 20180921, end: 20180922
  9. MORPHINE HYDROCHLORIDE [Concomitant]
     Active Substance: MORPHINE HYDROCHLORIDE
     Dosage: QUNATITY 16; DAYS 1
     Dates: start: 20180921, end: 20180922
  10. MORPHINE HYDROCHLORIDE [Concomitant]
     Active Substance: MORPHINE HYDROCHLORIDE
     Dosage: QUANTITY 1; DAYS 9
     Dates: start: 20181014, end: 20181016

REACTIONS (2)
  - Malignant neoplasm progression [Fatal]
  - Product use in unapproved indication [Unknown]

NARRATIVE: CASE EVENT DATE: 20180921
